FAERS Safety Report 7778463-3 (Version None)
Quarter: 2011Q3

REPORT INFORMATION
  Report Type: 
  Country: None (occurrence: None)
  Receive Date: 20110926
  Receipt Date: 20110916
  Transmission Date: 20111222
  Serious: Yes (Other)
  Sender: FDA-Public Use
  Company Number: FR-GLAXOSMITHKLINE-B0747802A

PATIENT
  Sex: Male

DRUGS (3)
  1. ZOFRAN [Suspect]
     Indication: PREMEDICATION
     Dosage: 8MG CYCLIC
     Route: 042
     Dates: start: 20110607, end: 20110607
  2. TAXOTERE [Suspect]
     Indication: CHEMOTHERAPY
     Dosage: 75MGM2 CYCLIC
     Route: 042
     Dates: start: 20110607, end: 20110607
  3. PREVISCAN [Concomitant]
     Route: 065

REACTIONS (4)
  - OEDEMA PERIPHERAL [None]
  - NAIL DISORDER [None]
  - ERYTHEMA [None]
  - NAUSEA [None]
